FAERS Safety Report 4795304-7 (Version None)
Quarter: 2005Q4

REPORT INFORMATION
  Report Type: 
  Country: None (occurrence: None)
  Receive Date: 20051012
  Receipt Date: 20051006
  Transmission Date: 20060501
  Serious: Yes (Hospitalization, Disabling, Other)
  Sender: FDA-Public Use
  Company Number: US-GLAXOSMITHKLINE-A0577534A

PATIENT
  Age: 25 Year
  Sex: Male

DRUGS (4)
  1. LAMICTAL [Suspect]
     Indication: BIPOLAR DISORDER
     Dosage: 100MG PER DAY
     Route: 048
  2. ABILIFY [Concomitant]
  3. LITHIUM [Concomitant]
  4. COCAINE [Concomitant]

REACTIONS (2)
  - MANIA [None]
  - OVERDOSE [None]
